FAERS Safety Report 8867918 (Version 1)
Quarter: 2012Q4

REPORT INFORMATION
  Report Type: 
  Country: US (occurrence: US)
  Receive Date: 20121026
  Receipt Date: 20121026
  Transmission Date: 20130627
  Serious: No
  Sender: FDA-Public Use
  Company Number: US-AMGEN-USASP2012040760

PATIENT
  Age: 61 Year
  Sex: Male

DRUGS (6)
  1. ENBREL [Suspect]
     Indication: RHEUMATOID ARTHRITIS
     Dosage: 50 mg/ml, qwk
     Route: 058
  2. METOPROLOL ER [Concomitant]
     Dosage: 25 mg, UNK
  3. CRESTOR [Concomitant]
     Dosage: 20 mg, UNK
  4. FELODIPINE ER [Concomitant]
     Dosage: 2.5 mg, UNK
  5. LOSARTAN POT [Concomitant]
     Dosage: 25 mg, UNK
  6. PREDNISONE [Concomitant]
     Dosage: 2.5 mg, UNK

REACTIONS (3)
  - Groin pain [Unknown]
  - Renal impairment [Unknown]
  - Drug ineffective [Unknown]
